FAERS Safety Report 20655521 (Version 2)
Quarter: 2022Q2

REPORT INFORMATION
  Report Type: Spontaneous
  Country: US (occurrence: US)
  Receive Date: 20220330
  Receipt Date: 20220401
  Transmission Date: 20220721
  Serious: Yes (Other)
  Sender: FDA-Public Use
  Company Number: US-PFIZER INC-2021715069

PATIENT
  Age: 87 Year
  Sex: Female

DRUGS (1)
  1. AZULFIDINE [Interacting]
     Active Substance: SULFASALAZINE
     Indication: Colitis ulcerative
     Dosage: UNK

REACTIONS (2)
  - Colitis ulcerative [Unknown]
  - Therapeutic agent-diagnostic test interaction [Unknown]
